FAERS Safety Report 8554193-5 (Version None)
Quarter: 2012Q3

REPORT INFORMATION
  Report Type: 
  Country: None (occurrence: None)
  Receive Date: 20120731
  Receipt Date: 20120727
  Transmission Date: 20120928
  Serious: Yes (Hospitalization)
  Sender: FDA-Public Use
  Company Number: IT-ELI_LILLY_AND_COMPANY-IT201205005481

PATIENT
  Sex: Male

DRUGS (1)
  1. GEMZAR [Suspect]

REACTIONS (2)
  - PNEUMONIA [None]
  - FEBRILE NEUTROPENIA [None]
